FAERS Safety Report 4961099-7 (Version None)
Quarter: 2006Q1

REPORT INFORMATION
  Report Type: 
  Country: None (occurrence: None)
  Receive Date: 20060327
  Receipt Date: 20060313
  Transmission Date: 20060701
  Serious: Yes (Hospitalization)
  Sender: FDA-Public Use
  Company Number: B0416453A

PATIENT
  Age: 47 Year
  Sex: Male

DRUGS (10)
  1. LITHIUM CARBONATE [Suspect]
     Dosage: 450 MG / TWICE PER DAY /
  2. ZIPRASIDONE HCL (ZIPRASIDONE HCL) [Suspect]
     Dosage: SEE DOSAGE TEXT / SEE TEXT
  3. SEMISODIUM VALPROATE [Concomitant]
  4. LOSARTAN POTASSIUM [Concomitant]
  5. IBUPROFEN [Concomitant]
  6. FRUSEMIDE [Concomitant]
  7. DIPHENHYDRAMINE [Concomitant]
  8. PARACETAMOL [Concomitant]
  9. IPRATROPIUM BROMIDE [Concomitant]
  10. FLUNISOLIDE [Concomitant]

REACTIONS (25)
  - ABASIA [None]
  - ADRENAL SUPPRESSION [None]
  - AGITATION [None]
  - ALANINE AMINOTRANSFERASE INCREASED [None]
  - ANTICONVULSANT DRUG LEVEL BELOW THERAPEUTIC [None]
  - ASPARTATE AMINOTRANSFERASE INCREASED [None]
  - BLOOD CREATINE INCREASED [None]
  - BLOOD POTASSIUM INCREASED [None]
  - BLOOD PRESSURE DECREASED [None]
  - BLOOD SODIUM INCREASED [None]
  - CONDITION AGGRAVATED [None]
  - DIABETES INSIPIDUS [None]
  - DYSPNOEA [None]
  - INCREASED TENDENCY TO BRUISE [None]
  - LOSS OF CONSCIOUSNESS [None]
  - MANIA [None]
  - MYOGLOBINURIA [None]
  - NEUROLEPTIC MALIGNANT SYNDROME [None]
  - PSYCHOTIC DISORDER [None]
  - PYREXIA [None]
  - SEPSIS [None]
  - SOMNOLENCE [None]
  - TACHYPNOEA [None]
  - THERAPEUTIC AGENT TOXICITY [None]
  - TREATMENT NONCOMPLIANCE [None]
